FAERS Safety Report 20587271 (Version 1)
Quarter: 2022Q1

REPORT INFORMATION
  Report Type: Spontaneous
  Country: DE (occurrence: DE)
  Receive Date: 20220314
  Receipt Date: 20220314
  Transmission Date: 20220423
  Serious: Yes (Other)
  Sender: FDA-Public Use
  Company Number: None

PATIENT
  Age: 71 Year
  Sex: Female
  Weight: 98 kg

DRUGS (1)
  1. PRAVASTATIN SODIUM [Suspect]
     Active Substance: PRAVASTATIN SODIUM
     Indication: Coronary artery disease
     Route: 048

REACTIONS (3)
  - Myalgia [Unknown]
  - Depressive symptom [Unknown]
  - Memory impairment [Unknown]

NARRATIVE: CASE EVENT DATE: 20210409
